FAERS Safety Report 20155483 (Version 2)
Quarter: 2022Q1

REPORT INFORMATION
  Report Type: Spontaneous
  Country: US (occurrence: US)
  Receive Date: 20211207
  Receipt Date: 20220126
  Transmission Date: 20220423
  Serious: Yes (Hospitalization, Other)
  Sender: FDA-Public Use
  Company Number: US-drreddys-SPO/USA/21/0144479

PATIENT
  Age: 79 Year
  Sex: Female

DRUGS (3)
  1. DEXAMETHASONE SODIUM PHOSPHATE [Suspect]
     Active Substance: DEXAMETHASONE SODIUM PHOSPHATE
     Indication: COVID-19
  2. REMDESIVIR [Concomitant]
     Active Substance: REMDESIVIR
     Indication: COVID-19
  3. OXYGEN [Concomitant]
     Active Substance: OXYGEN
     Indication: COVID-19

REACTIONS (4)
  - Hepatic amoebiasis [Recovering/Resolving]
  - Amoebiasis [Recovering/Resolving]
  - Infection reactivation [Recovering/Resolving]
  - Amoebic colitis [Recovering/Resolving]
